FAERS Safety Report 24029542 (Version 1)
Quarter: 2024Q2

REPORT INFORMATION
  Report Type: Spontaneous
  Country: US (occurrence: US)
  Receive Date: 20240628
  Receipt Date: 20240628
  Transmission Date: 20240716
  Serious: No
  Sender: FDA-Public Use
  Company Number: US-INCYTE CORPORATION-2024IN006624

PATIENT

DRUGS (1)
  1. JAKAFI [Suspect]
     Active Substance: RUXOLITINIB
     Indication: Myelodysplastic syndrome
     Dosage: 10 MILLIGRAM, QD
     Route: 048
     Dates: start: 201802

REACTIONS (3)
  - Fatigue [Unknown]
  - Decreased activity [Unknown]
  - Off label use [Unknown]

NARRATIVE: CASE EVENT DATE: 20180201
